FAERS Safety Report 23416248 (Version 2)
Quarter: 2024Q1

REPORT INFORMATION
  Report Type: Spontaneous
  Country: FR (occurrence: FR)
  Receive Date: 20240118
  Receipt Date: 20240304
  Transmission Date: 20240410
  Serious: Yes (Hospitalization)
  Sender: FDA-Public Use
  Company Number: FR-MYLANLABS-2024M1004930

PATIENT
  Age: 71 Year
  Sex: Male
  Weight: 87 kg

DRUGS (1)
  1. DYMISTA [Suspect]
     Active Substance: AZELASTINE HYDROCHLORIDE\FLUTICASONE PROPIONATE
     Indication: Sinusitis
     Dosage: UNK UNK, QID
     Route: 045
     Dates: start: 20231208, end: 20231209

REACTIONS (2)
  - Diplopia [Recovered/Resolved]
  - Drug abuse [Unknown]

NARRATIVE: CASE EVENT DATE: 20231209
